FAERS Safety Report 23050200 (Version 1)
Quarter: 2023Q4

REPORT INFORMATION
  Report Type: Spontaneous
  Country: US (occurrence: None)
  Receive Date: 20231010
  Receipt Date: 20231010
  Transmission Date: 20240110
  Serious: Yes (Other)
  Sender: FDA-Public Use
  Company Number: 2023A224002

PATIENT
  Weight: 52.2 kg

DRUGS (2)
  1. BREZTRI [Suspect]
     Active Substance: BUDESONIDE\FORMOTEROL\GLYCOPYRROLATE
     Dosage: 160.0UG UNKNOWN
     Route: 055
  2. ALBUTEROL [Concomitant]
     Active Substance: ALBUTEROL

REACTIONS (11)
  - Drug hypersensitivity [Unknown]
  - Dyspnoea [Unknown]
  - Visual impairment [Unknown]
  - Migraine [Unknown]
  - Nausea [Unknown]
  - Vision blurred [Unknown]
  - Ocular discomfort [Unknown]
  - Intentional product use issue [Unknown]
  - Osteoporosis [Unknown]
  - Headache [Unknown]
  - Product use issue [Unknown]
